FAERS Safety Report 14093442 (Version 1)
Quarter: 2017Q4

REPORT INFORMATION
  Report Type: Spontaneous
  Country: US (occurrence: US)
  Receive Date: 20171016
  Receipt Date: 20171016
  Transmission Date: 20180321
  Serious: Yes (Other)
  Sender: FDA-Public Use
  Company Number: None

PATIENT
  Sex: Female
  Weight: 54.9 kg

DRUGS (3)
  1. ERIVEDGE [Suspect]
     Active Substance: VISMODEGIB
     Indication: BASAL CELL CARCINOMA
     Route: 048
     Dates: start: 20170713
  2. LISINOPRIL. [Concomitant]
     Active Substance: LISINOPRIL
  3. MULTIVITAMIN WOMEN [Concomitant]

REACTIONS (3)
  - Dysgeusia [None]
  - Muscle spasms [None]
  - Petechiae [None]
